FAERS Safety Report 5788936-0 (Version None)
Quarter: 2008Q2

REPORT INFORMATION
  Report Type: 
  Country: None (occurrence: None)
  Receive Date: 20080626
  Receipt Date: 20080619
  Transmission Date: 20081010
  Serious: Yes (Other)
  Sender: FDA-Public Use
  Company Number: GB-TEVA-173141ISR

PATIENT
  Age: 16 Year
  Sex: Female

DRUGS (4)
  1. NAPROXEN [Suspect]
     Dates: start: 20070201
  2. METHOTREXATE [Suspect]
     Indication: JUVENILE ARTHRITIS
     Route: 048
     Dates: start: 20060301, end: 20070920
  3. METHOTREXATE [Suspect]
     Route: 048
     Dates: start: 20050603, end: 20051001
  4. METHOTREXATE [Suspect]
     Route: 048
     Dates: start: 20030311, end: 20030612

REACTIONS (1)
  - ARTHRITIS [None]
